FAERS Safety Report 6601945-4 (Version None)
Quarter: 2010Q1

REPORT INFORMATION
  Report Type: 
  Country: None (occurrence: None)
  Receive Date: 20100218
  Receipt Date: 20100211
  Transmission Date: 20100710
  Serious: Yes (Other)
  Sender: FDA-Public Use
  Company Number: 006727

PATIENT
  Sex: Male

DRUGS (4)
  1. CIMZIA [Suspect]
     Indication: CROHN'S DISEASE
     Dosage: 400 MG 1X/MOTH SUBCUTANEOUS
     Route: 058
     Dates: start: 20090722
  2. PLAVIX [Suspect]
     Indication: ANTICOAGULANT THERAPY
     Dates: end: 20100125
  3. PREDNISONE [Concomitant]
  4. INSULIN [Concomitant]

REACTIONS (5)
  - DIARRHOEA [None]
  - FREQUENT BOWEL MOVEMENTS [None]
  - HAEMOGLOBIN DECREASED [None]
  - INTESTINAL HAEMORRHAGE [None]
  - MUSCULAR WEAKNESS [None]
